FAERS Safety Report 9009351 (Version 1)
Quarter: 2013Q1

REPORT INFORMATION
  Report Type: Spontaneous
  Country: US (occurrence: US)
  Receive Date: 20130111
  Receipt Date: 20130111
  Transmission Date: 20140127
  Serious: Yes (Life-Threatening, Hospitalization, Other)
  Sender: FDA-Public Use
  Company Number: US-009507513-1301XAA003134

PATIENT
  Age: 82 Year
  Sex: Female

DRUGS (6)
  1. SINGULAIR [Suspect]
     Route: 048
  2. LORATADINE [Suspect]
     Route: 048
  3. MUCODYNE [Suspect]
     Route: 048
  4. UNIPHYL [Suspect]
     Route: 048
  5. ASPIRIN [Concomitant]
     Route: 048
  6. INTAL [Concomitant]
     Route: 045

REACTIONS (3)
  - Tubulointerstitial nephritis [Unknown]
  - Leukocytoclastic vasculitis [Unknown]
  - Autoimmune thrombocytopenia [Unknown]
